FAERS Safety Report 13415905 (Version 1)
Quarter: 2017Q2

REPORT INFORMATION
  Report Type: Spontaneous
  Country: US (occurrence: US)
  Receive Date: 20170406
  Receipt Date: 20170406
  Transmission Date: 20170830
  Serious: No
  Sender: FDA-Public Use
  Company Number: US-BAYER-2017-066444

PATIENT
  Sex: Female

DRUGS (1)
  1. FINACEA [Suspect]
     Active Substance: AZELAIC ACID
     Indication: PSEUDOFOLLICULITIS BARBAE
     Dosage: UNK, QD
     Route: 061

REACTIONS (2)
  - Product use in unapproved indication [Not Recovered/Not Resolved]
  - Application site dryness [Not Recovered/Not Resolved]
